FAERS Safety Report 25571436 (Version 1)
Quarter: 2025Q3

REPORT INFORMATION
  Report Type: Report from Study
  Country: CA (occurrence: CA)
  Receive Date: 20250717
  Receipt Date: 20250717
  Transmission Date: 20251021
  Serious: Yes (Hospitalization)
  Sender: SAMSUNG BIOEPIS
  Company Number: CA-SAMSUNG BIOEPIS-SB-2025-24105

PATIENT
  Age: 81 Year
  Sex: Male

DRUGS (4)
  1. RENFLEXIS [Suspect]
     Active Substance: INFLIXIMAB-ABDA
     Indication: Colitis ulcerative
     Dosage: 535.7 MG;
     Route: 042
     Dates: start: 20241202, end: 20250623
  2. LOSEC [Concomitant]
     Active Substance: OMEPRAZOLE
     Indication: Product used for unknown indication
  3. MESALAMINE [Concomitant]
     Active Substance: MESALAMINE
     Indication: Product used for unknown indication
  4. RAMIPRIL [Concomitant]
     Active Substance: RAMIPRIL
     Indication: Product used for unknown indication

REACTIONS (13)
  - Insomnia [Unknown]
  - Movement disorder [Unknown]
  - Arthralgia [Unknown]
  - Groin pain [Unknown]
  - Dyskinesia [Unknown]
  - Contusion [Unknown]
  - Back pain [Not Recovered/Not Resolved]
  - Gastrointestinal disorder [Unknown]
  - Swelling [Recovering/Resolving]
  - Diarrhoea [Unknown]
  - Drug specific antibody [Unknown]
  - Pain [Unknown]
  - Myalgia [Unknown]
